FAERS Safety Report 13066378 (Version 1)
Quarter: 2016Q4

REPORT INFORMATION
  Report Type: Spontaneous
  Country: IT (occurrence: IT)
  Receive Date: 20161227
  Receipt Date: 20161227
  Transmission Date: 20170207
  Serious: Yes (Other)
  Sender: FDA-Public Use
  Company Number: IT-SA-2016SA234023

PATIENT
  Age: 20 Year
  Sex: Female

DRUGS (1)
  1. IRBESARTAN. [Suspect]
     Active Substance: IRBESARTAN
     Route: 065
     Dates: start: 20150723, end: 20150723

REACTIONS (2)
  - Depressed mood [Unknown]
  - Drug abuse [Unknown]

NARRATIVE: CASE EVENT DATE: 20150723
